FAERS Safety Report 5300555-9 (Version None)
Quarter: 2007Q2

REPORT INFORMATION
  Report Type: 
  Country: None (occurrence: None)
  Receive Date: 20070418
  Receipt Date: 20070412
  Transmission Date: 20071010
  Serious: Yes (Other)
  Sender: FDA-Public Use
  Company Number: US-GLAXOSMITHKLINE-A0637209A

PATIENT
  Age: 73 Year
  Sex: Female

DRUGS (12)
  1. COREG [Suspect]
     Dosage: 6.25MG TWICE PER DAY
     Route: 048
  2. LISINOPRIL [Suspect]
     Indication: CARDIAC FAILURE
     Route: 048
  3. LANOXIN [Suspect]
     Indication: DRUG USE FOR UNKNOWN INDICATION
     Route: 048
  4. COUMADIN [Concomitant]
  5. ALDACTONE [Concomitant]
  6. ANTIOXIDANT [Concomitant]
     Dosage: 1TAB PER DAY
     Route: 048
  7. BALANCED B-50 [Concomitant]
     Dosage: 1TAB PER DAY
     Route: 048
  8. COENZYME Q10 [Concomitant]
     Dosage: 1CAP PER DAY
     Route: 048
  9. FISH OIL [Concomitant]
     Dosage: 1000MG PER DAY
     Route: 048
  10. LASIX [Concomitant]
     Dosage: 20MG PER DAY
     Route: 048
  11. PREMARIN [Concomitant]
     Dosage: .3MG PER DAY
     Route: 048
  12. NYSTATIN [Concomitant]
     Dosage: 5ML FOUR TIMES PER DAY
     Route: 048

REACTIONS (14)
  - ASTHENIA [None]
  - ATRIAL FIBRILLATION [None]
  - BREATH SOUNDS ABNORMAL [None]
  - BUNDLE BRANCH BLOCK LEFT [None]
  - CARDIAC DISORDER [None]
  - CARDIOACTIVE DRUG LEVEL INCREASED [None]
  - DIZZINESS [None]
  - EJECTION FRACTION DECREASED [None]
  - FATIGUE [None]
  - HYPOTENSION [None]
  - LUNG DISORDER [None]
  - PALPITATIONS [None]
  - PROCEDURAL COMPLICATION [None]
  - THERAPEUTIC AGENT TOXICITY [None]
